FAERS Safety Report 15005895 (Version 1)
Quarter: 2018Q2

REPORT INFORMATION
  Report Type: Spontaneous
  Country: US (occurrence: US)
  Receive Date: 20180613
  Receipt Date: 20180613
  Transmission Date: 20180711
  Serious: Yes (Hospitalization)
  Sender: FDA-Public Use
  Company Number: US-RADIUS HEALTH, INC.-2018US001081

PATIENT
  Sex: Female

DRUGS (1)
  1. TYMLOS [Suspect]
     Active Substance: ABALOPARATIDE
     Indication: OSTEOPOROSIS POSTMENOPAUSAL
     Dosage: 80 MCG, DAILY
     Route: 058
     Dates: start: 20180313

REACTIONS (9)
  - Disorientation [Unknown]
  - Feeling abnormal [Unknown]
  - Urinary tract infection [Unknown]
  - Hiatus hernia [Unknown]
  - Retching [Unknown]
  - Dizziness [Unknown]
  - Back pain [Unknown]
  - Confusional state [Unknown]
  - Asthenia [Unknown]
